FAERS Safety Report 8391529-2 (Version None)
Quarter: 2012Q2

REPORT INFORMATION
  Report Type: 
  Country: None (occurrence: None)
  Receive Date: 20120529
  Receipt Date: 20120521
  Transmission Date: 20120825
  Serious: Yes (Other)
  Sender: FDA-Public Use
  Company Number: US-B.I. PHARMACEUTICALS,INC./RIDGEFIELD-2012-BP-11289BP

PATIENT
  Age: 78 Year
  Sex: Female
  Weight: 65 kg

DRUGS (8)
  1. NEXIUM [Concomitant]
     Indication: GASTROOESOPHAGEAL REFLUX DISEASE
  2. LANOXIN [Concomitant]
  3. DIOVAN [Concomitant]
     Indication: HYPERTENSION
  4. INSULIN (2 TYPES) [Concomitant]
     Indication: TYPE 1 DIABETES MELLITUS
  5. LEXAPRO [Concomitant]
  6. POTASSIUM CHLORIDE [Concomitant]
  7. PRADAXA [Suspect]
     Indication: ATRIAL FIBRILLATION
     Dosage: 300 MG
     Route: 048
     Dates: start: 20100101
  8. ARICEPT [Concomitant]
     Indication: CEREBROVASCULAR ACCIDENT

REACTIONS (3)
  - MUSCLE SPASMS [None]
  - URINARY INCONTINENCE [None]
  - ABNORMAL LOSS OF WEIGHT [None]
